FAERS Safety Report 21917030 (Version 1)
Quarter: 2023Q1

REPORT INFORMATION
  Report Type: Spontaneous
  Country: US (occurrence: US)
  Receive Date: 20230126
  Receipt Date: 20230126
  Transmission Date: 20230418
  Serious: No
  Sender: FDA-Public Use
  Company Number: US-BAYER-2023A004522

PATIENT
  Age: 6 Month
  Sex: Male

DRUGS (1)
  1. RIOCIGUAT [Suspect]
     Active Substance: RIOCIGUAT
     Indication: Pulmonary hypertension
     Dosage: UNK
     Route: 048

REACTIONS (3)
  - Off label use [None]
  - Contraindicated product administered [None]
  - Hypotension [None]
